FAERS Safety Report 5594786-0 (Version None)
Quarter: 2008Q1

REPORT INFORMATION
  Report Type: 
  Country: None (occurrence: None)
  Receive Date: 20080117
  Receipt Date: 20080114
  Transmission Date: 20080703
  Serious: Yes (Life-Threatening)
  Sender: FDA-Public Use
  Company Number: A0703706A

PATIENT
  Sex: Male

DRUGS (1)
  1. PARNATE [Suspect]
     Indication: DEPRESSION

REACTIONS (1)
  - DEPRESSION [None]
